FAERS Safety Report 24078331 (Version 2)
Quarter: 2024Q3

REPORT INFORMATION
  Report Type: Spontaneous
  Country: US (occurrence: US)
  Receive Date: 20240711
  Receipt Date: 20240813
  Transmission Date: 20241017
  Serious: Yes (Other)
  Sender: PFIZER
  Company Number: US-PFIZER INC-PV202400073155

PATIENT
  Age: 74 Year
  Sex: Female
  Weight: 98.3 kg

DRUGS (4)
  1. TUKYSA [Suspect]
     Active Substance: TUCATINIB
     Indication: Breast cancer stage IV
     Dosage: 300 MG, 2X/DAY
     Route: 048
     Dates: start: 20230623, end: 20240530
  2. TUKYSA [Suspect]
     Active Substance: TUCATINIB
     Indication: HER2 positive breast cancer
  3. TRAZIMERA [Concomitant]
     Active Substance: TRASTUZUMAB-QYYP
     Indication: Breast cancer stage IV
     Dosage: 565 MG, EVERY 3 WEEKS
  4. XELODA [Concomitant]
     Active Substance: CAPECITABINE
     Indication: Breast cancer stage IV
     Dosage: 1500 MG, 2X/DAY

REACTIONS (3)
  - Cerebral disorder [Unknown]
  - Localised infection [Recovering/Resolving]
  - Erythromelalgia [Recovering/Resolving]

NARRATIVE: CASE EVENT DATE: 20240524
